FAERS Safety Report 5812220-X (Version None)
Quarter: 2008Q3

REPORT INFORMATION
  Report Type: 
  Country: None (occurrence: None)
  Receive Date: 20080714
  Receipt Date: 20080702
  Transmission Date: 20090109
  Serious: Yes (Death)
  Sender: FDA-Public Use
  Company Number: GXKR2008CN06118

PATIENT
  Age: 41 Year
  Sex: Male

DRUGS (3)
  1. CYCLOSPORINE [Suspect]
     Indication: IMMUNOSUPPRESSION
  2. PREDNISOLONE [Suspect]
     Indication: IMMUNOSUPPRESSION
  3. CYCLOPHOSPHAMIDE [Suspect]
     Indication: IMMUNOSUPPRESSION

REACTIONS (10)
  - ABDOMINAL PAIN [None]
  - ARTERIAL RUPTURE [None]
  - ASPERGILLOSIS [None]
  - COMPLICATIONS OF TRANSPLANT SURGERY [None]
  - DYSPNOEA [None]
  - GENERALISED OEDEMA [None]
  - GRAFT HAEMORRHAGE [None]
  - HAEMODIALYSIS [None]
  - HYPOTENSION [None]
  - MULTI-ORGAN FAILURE [None]
